FAERS Safety Report 8239736-3 (Version None)
Quarter: 2012Q1

REPORT INFORMATION
  Report Type: 
  Country: None (occurrence: None)
  Receive Date: 20120328
  Receipt Date: 20120318
  Transmission Date: 20120608
  Serious: Yes (Other)
  Sender: FDA-Public Use
  Company Number: US-JNJFOC-20120309285

PATIENT
  Sex: Male

DRUGS (3)
  1. EXTRA STRENGTH TYLENOL [Suspect]
     Route: 048
  2. EXTRA STRENGTH TYLENOL [Suspect]
     Indication: HEADACHE
     Route: 048
  3. UNSPECIFIED NARCOTIC [Suspect]
     Indication: ANALGESIC THERAPY
     Route: 065

REACTIONS (2)
  - HEPATIC STEATOSIS [None]
  - LIVER INJURY [None]
